FAERS Safety Report 9903238 (Version 1)
Quarter: 2014Q1

REPORT INFORMATION
  Report Type: Spontaneous
  Country: US (occurrence: US)
  Receive Date: 20140217
  Receipt Date: 20140217
  Transmission Date: 20141002
  Serious: No
  Sender: FDA-Public Use
  Company Number: US-ASTRAZENECA-2013SE69357

PATIENT
  Age: 52 Year
  Sex: Male
  Weight: 70.8 kg

DRUGS (8)
  1. ATENOLOL [Suspect]
     Indication: HYPERTENSION
     Route: 048
     Dates: start: 2012
  2. NEXIUM [Suspect]
     Indication: GASTROOESOPHAGEAL REFLUX DISEASE
     Route: 048
     Dates: start: 2011
  3. NEXIUM [Suspect]
     Indication: IRRITABLE BOWEL SYNDROME
     Route: 048
     Dates: start: 2011
  4. PRILOSEC OTC [Suspect]
     Indication: GASTROOESOPHAGEAL REFLUX DISEASE
     Route: 048
  5. CLONAZEPAM [Concomitant]
     Indication: ANXIETY
     Dosage: 1 MG 2 TO 3 TIMES PRN
     Route: 048
     Dates: start: 1998
  6. CLONAZEPAM [Concomitant]
     Indication: PANIC DISORDER
     Dosage: 1 MG 2 TO 3 TIMES PRN
     Route: 048
     Dates: start: 1998
  7. BENADRYL [Concomitant]
     Indication: MULTIPLE ALLERGIES
     Dosage: UNKNOWN PRN
     Route: 048
  8. STORE BRAND ADVIL [Concomitant]
     Indication: BACK PAIN
     Dosage: UNKNOWN PRN
     Route: 048
     Dates: start: 201307

REACTIONS (4)
  - Gastric disorder [Recovered/Resolved]
  - Concussion [Recovered/Resolved]
  - Head injury [Unknown]
  - Intentional drug misuse [Not Recovered/Not Resolved]
